FAERS Safety Report 16086839 (Version 2)
Quarter: 2019Q4

REPORT INFORMATION
  Report Type: Report from Study
  Country: US (occurrence: US)
  Receive Date: 20190318
  Receipt Date: 20191031
  Transmission Date: 20200122
  Serious: Yes (Death)
  Sender: FDA-Public Use
  Company Number: US-ACTELION-A-NJ2019-187379

PATIENT
  Age: 55 Year
  Sex: Male
  Weight: 67.12 kg

DRUGS (1)
  1. OPSUMIT [Suspect]
     Active Substance: MACITENTAN
     Indication: PULMONARY ARTERIAL HYPERTENSION
     Dosage: 10 MG, QD
     Route: 048
     Dates: start: 20181009, end: 20190219

REACTIONS (1)
  - Oesophageal varices haemorrhage [Fatal]

NARRATIVE: CASE EVENT DATE: 20190129
